FAERS Safety Report 22324005 (Version 1)
Quarter: 2023Q2

REPORT INFORMATION
  Report Type: Spontaneous
  Country: BR (occurrence: BR)
  Receive Date: 20230516
  Receipt Date: 20230516
  Transmission Date: 20230721
  Serious: Yes (Death, Other)
  Sender: FDA-Public Use
  Company Number: BR-ASTELLAS-2023US012495

PATIENT
  Age: 55 Year
  Sex: Male

DRUGS (2)
  1. PADCEV [Suspect]
     Active Substance: ENFORTUMAB VEDOTIN-EJFV
     Indication: Transitional cell carcinoma
     Dosage: UNK UNK, DAY 1, CYCLE 1 (D1, C1) OF A 21-DAY CYCLE
     Route: 065
     Dates: start: 20230418, end: 20230425
  2. PEMBROLIZUMAB [Concomitant]
     Active Substance: PEMBROLIZUMAB
     Indication: Transitional cell carcinoma
     Dosage: UNK UNK, UNKNOWN FREQ.
     Route: 065
     Dates: start: 20230418, end: 20230418

REACTIONS (2)
  - Gastrointestinal haemorrhage [Fatal]
  - Off label use [Unknown]
